FAERS Safety Report 7208512-2 (Version None)
Quarter: 2011Q1

REPORT INFORMATION
  Report Type: 
  Country: None (occurrence: None)
  Receive Date: 20110104
  Receipt Date: 20101101
  Transmission Date: 20110831
  Serious: Yes (Hospitalization)
  Sender: FDA-Public Use
  Company Number: US-BAYER-201026761NA

PATIENT
  Sex: Female
  Weight: 60.909 kg

DRUGS (17)
  1. YAZ [Suspect]
     Indication: CONTRACEPTION
     Route: 048
     Dates: start: 20080501, end: 20080901
  2. ZANTAC [Concomitant]
     Indication: DYSPEPSIA
     Route: 048
  3. PROTONIX [Concomitant]
     Indication: GASTROOESOPHAGEAL REFLUX DISEASE
  4. FIBER [Concomitant]
     Route: 048
  5. GAS-X [Concomitant]
     Indication: DYSPEPSIA
     Dosage: DAILY
     Route: 048
  6. PEPTO-BISMOL [Concomitant]
     Indication: NAUSEA
  7. REGLAN [Concomitant]
  8. YAZ [Suspect]
     Indication: PREMENSTRUAL SYNDROME
  9. MULTI-VITAMINS [Concomitant]
     Dosage: 1 CAPSULE DAILY
     Route: 048
  10. PREVACID [Concomitant]
  11. DIETARY SUPPLEMENTS [Concomitant]
  12. PROTONIX [Concomitant]
     Indication: ABDOMINAL PAIN
     Dates: start: 20070801, end: 20080401
  13. YASMIN [Suspect]
     Indication: PRODUCT USED FOR UNKNOWN INDICATION
     Route: 048
  14. PEPTO-BISMOL [Concomitant]
     Indication: DYSPEPSIA
  15. ASCORBIC ACID [Concomitant]
  16. ZEGERID [Concomitant]
     Indication: ABDOMINAL PAIN
     Dosage: DAILY
     Dates: start: 20080601, end: 20081001
  17. ZEGERID [Concomitant]
     Indication: GASTROOESOPHAGEAL REFLUX DISEASE

REACTIONS (5)
  - BILIARY DYSKINESIA [None]
  - NAUSEA [None]
  - ABDOMINAL PAIN UPPER [None]
  - ABDOMINAL PAIN [None]
  - MENTAL DISORDER [None]
